FAERS Safety Report 19686421 (Version 1)
Quarter: 2021Q3

REPORT INFORMATION
  Report Type: Spontaneous
  Country: IL (occurrence: IL)
  Receive Date: 20210811
  Receipt Date: 20210811
  Transmission Date: 20211014
  Serious: Yes (Hospitalization)
  Sender: FDA-Public Use
  Company Number: IL-EISAI MEDICAL RESEARCH-EC-2021-097388

PATIENT
  Sex: Female

DRUGS (4)
  1. LENVIMA [Suspect]
     Active Substance: LENVATINIB
     Indication: MALIGNANT NEOPLASM OF THYMUS
     Route: 048
  2. LENVIMA [Suspect]
     Active Substance: LENVATINIB
     Route: 048
  3. LENVIMA [Suspect]
     Active Substance: LENVATINIB
     Route: 048
  4. LENVIMA [Suspect]
     Active Substance: LENVATINIB
     Route: 048

REACTIONS (3)
  - Product use in unapproved indication [Unknown]
  - Peritonitis [Unknown]
  - Appendicitis [Unknown]
